FAERS Safety Report 5837956-6 (Version None)
Quarter: 2008Q3

REPORT INFORMATION
  Report Type: 
  Country: None (occurrence: None)
  Receive Date: 20080808
  Receipt Date: 20071218
  Transmission Date: 20090109
  Serious: No
  Sender: FDA-Public Use
  Company Number: A0699535A

PATIENT
  Age: 70 Year
  Sex: Male

DRUGS (3)
  1. PAXIL [Suspect]
     Indication: OBSESSIVE-COMPULSIVE DISORDER
     Dosage: 20MG PER DAY
     Route: 048
     Dates: start: 20050101
  2. METHOTREXATE [Concomitant]
  3. HUMIRA [Concomitant]

REACTIONS (1)
  - BALANCE DISORDER [None]
